FAERS Safety Report 4305300-1 (Version None)
Quarter: 2004Q1

REPORT INFORMATION
  Report Type: 
  Country: None (occurrence: None)
  Receive Date: 20040226
  Receipt Date: 20030320
  Transmission Date: 20041129
  Serious: No
  Sender: FDA-Public Use
  Company Number: US-BRISTOL-MYERS SQUIBB COMPANY-12217402

PATIENT
  Age: 72 Year
  Sex: Female

DRUGS (5)
  1. TAXOL [Suspect]
     Indication: UTERINE CANCER
     Route: 042
     Dates: start: 20030305, end: 20030305
  2. CARBOPLATIN [Suspect]
     Indication: UTERINE CANCER
     Route: 042
     Dates: start: 20030305, end: 20030305
  3. DEXAMETHASONE [Concomitant]
     Indication: PREMEDICATION
     Dosage: 5 TABLETS ON 04-MAR-2003, 5 TABLETS ON 05-MAR-2003 IN MORNING AND AGAIN BEFORE TREATMENT
     Route: 048
     Dates: start: 20030304, end: 20030305
  4. CIMETIDINE HCL [Concomitant]
     Indication: PREMEDICATION
     Route: 042
     Dates: start: 20030305
  5. BENADRYL [Concomitant]
     Indication: PREMEDICATION
     Route: 042
     Dates: start: 20030305

REACTIONS (1)
  - RASH [None]
